FAERS Safety Report 11685564 (Version 1)
Quarter: 2015Q4

REPORT INFORMATION
  Report Type: Spontaneous
  Country: US (occurrence: US)
  Receive Date: 20151030
  Receipt Date: 20151030
  Transmission Date: 20160304
  Serious: Yes (Death, Other)
  Sender: FDA-Public Use
  Company Number: US-009507513-1510USA013093

PATIENT
  Age: 53 Year
  Sex: Female

DRUGS (13)
  1. LOVASTATIN. [Suspect]
     Active Substance: LOVASTATIN
  2. CLONAZEPAM. [Suspect]
     Active Substance: CLONAZEPAM
  3. LANSOPRAZOLE. [Suspect]
     Active Substance: LANSOPRAZOLE
  4. GABAPENTIN. [Suspect]
     Active Substance: GABAPENTIN
  5. BENAZEPRIL HYDROCHLORIDE. [Suspect]
     Active Substance: BENAZEPRIL HYDROCHLORIDE
  6. LEVOTHYROXINE SODIUM. [Suspect]
     Active Substance: LEVOTHYROXINE SODIUM
  7. ROFECOXIB [Suspect]
     Active Substance: ROFECOXIB
  8. LORAZEPAM. [Suspect]
     Active Substance: LORAZEPAM
  9. TRAZODONE HYDROCHLORIDE. [Suspect]
     Active Substance: TRAZODONE HYDROCHLORIDE
  10. MEDROXYPROGESTERONE ACETATE. [Suspect]
     Active Substance: MEDROXYPROGESTERONE ACETATE
  11. PAROXETINE HYDROCHLORIDE. [Suspect]
     Active Substance: PAROXETINE HYDROCHLORIDE
  12. POLYETHYLENE GLYCOL 3350. [Suspect]
     Active Substance: POLYETHYLENE GLYCOL 3350
     Indication: PRODUCT USED FOR UNKNOWN INDICATION
     Dosage: UNK
     Route: 048
  13. ASPIRIN. [Suspect]
     Active Substance: ASPIRIN

REACTIONS (9)
  - Loss of consciousness [Fatal]
  - Metabolic acidosis [Fatal]
  - Cerebral infarction [Fatal]
  - Hypoxic-ischaemic encephalopathy [Fatal]
  - Mydriasis [Fatal]
  - Completed suicide [Fatal]
  - Dizziness [Fatal]
  - Coma [Fatal]
  - Intentional overdose [Fatal]
